FAERS Safety Report 5136799-9 (Version None)
Quarter: 2006Q4

REPORT INFORMATION
  Report Type: 
  Country: None (occurrence: None)
  Receive Date: 20061023
  Receipt Date: 20061017
  Transmission Date: 20070319
  Serious: Yes (Other)
  Sender: FDA-Public Use
  Company Number: 229640

PATIENT
  Age: 77 Year
  Sex: Male

DRUGS (5)
  1. LUCENTIS [Suspect]
     Indication: MACULAR DEGENERATION
     Dosage: 0.5 MG, 1/MONTH, INTRAVITREAL
     Dates: start: 20060817
  2. TIAZAC [Concomitant]
  3. EFFEXOR [Concomitant]
  4. LOVASTATIN [Concomitant]
  5. CELEBREX [Concomitant]

REACTIONS (4)
  - EYE PAIN [None]
  - INJECTION SITE PAIN [None]
  - POST PROCEDURAL COMPLICATION [None]
  - VISUAL ACUITY REDUCED [None]
